FAERS Safety Report 4283537-8 (Version None)
Quarter: 2004Q1

REPORT INFORMATION
  Report Type: 
  Country: None (occurrence: None)
  Receive Date: 20040120
  Receipt Date: 20030825
  Transmission Date: 20041129
  Serious: Yes (Other)
  Sender: FDA-Public Use
  Company Number: NSADSS2003019480

PATIENT
  Age: 23 Year
  Sex: Female
  Weight: 73.4827 kg

DRUGS (2)
  1. PARAGARD T380A (INTRAUTERINE CONTRACEPTIVE DEVICE) INTRAUTERINE DEVICE [Suspect]
     Indication: CONTRACEPTION
     Dosage: INTRAUTERINE
     Route: 015
     Dates: start: 20030414, end: 20030418
  2. PRENATAL VITAMINS (PRENATAL VITAMINS) [Concomitant]

REACTIONS (2)
  - PELVIC PAIN [None]
  - UTERINE PERFORATION [None]
